FAERS Safety Report 23885176 (Version 1)
Quarter: 2024Q2

REPORT INFORMATION
  Report Type: Spontaneous
  Country: AU (occurrence: AU)
  Receive Date: 20240522
  Receipt Date: 20240522
  Transmission Date: 20240716
  Serious: Yes (Hospitalization, Other)
  Sender: FDA-Public Use
  Company Number: AU-SUN PHARMACEUTICAL INDUSTRIES LTD-2024R1-447234

PATIENT
  Age: 73 Year
  Sex: Female

DRUGS (50)
  1. LENALIDOMIDE [Suspect]
     Active Substance: LENALIDOMIDE
     Indication: Plasma cell myeloma
     Dosage: 5 MILLIGRAM
     Route: 048
     Dates: start: 20220203, end: 20230307
  2. BORTEZOMIB [Suspect]
     Active Substance: BORTEZOMIB
     Indication: Plasma cell myeloma
     Dosage: 1.1 MILLILITER
     Route: 058
  3. DARATUMUMAB [Suspect]
     Active Substance: DARATUMUMAB
     Indication: Plasma cell myeloma
     Dosage: 15 MILLILITER
     Route: 058
     Dates: start: 20220113, end: 20230216
  4. TECLISTAMAB [Suspect]
     Active Substance: TECLISTAMAB
     Indication: Plasma cell myeloma
     Dosage: 0.49 MILLIMOLE
     Route: 058
     Dates: start: 20220114, end: 20230119
  5. AMOXICILLIN\CLAVULANATE POTASSIUM [Concomitant]
     Active Substance: AMOXICILLIN\CLAVULANATE POTASSIUM
     Indication: Urinary tract infection
     Dosage: 1 DOSE
     Route: 048
     Dates: start: 20230301, end: 20230301
  6. INTRAGAM P [Concomitant]
     Active Substance: HUMAN IMMUNOGLOBULIN G
     Indication: Hypogammaglobulinaemia
     Dosage: 25 MILLIGRAM
     Route: 065
     Dates: start: 20220406
  7. PANADOL [Concomitant]
     Active Substance: ACETAMINOPHEN
     Indication: Osteoarthritis
     Dosage: 2 DOSE
     Route: 048
     Dates: start: 20200101
  8. SYMBICORT [Concomitant]
     Active Substance: BUDESONIDE\FORMOTEROL FUMARATE DIHYDRATE
     Indication: Asthma
     Dosage: UNK
  9. THYROXINE [Concomitant]
     Active Substance: LEVOTHYROXINE
     Indication: Hypothyroidism
     Dosage: 75 MILLIGRAM
     Route: 048
     Dates: start: 20200101
  10. THYROXINE [Concomitant]
     Active Substance: LEVOTHYROXINE
     Dosage: 150 MILLIGRAM
     Route: 048
     Dates: start: 20231101, end: 20240312
  11. THYROXINE [Concomitant]
     Active Substance: LEVOTHYROXINE
     Dosage: 100 MICROGRAM
     Route: 048
     Dates: start: 20221010, end: 20231101
  12. AMOXICILLIN [Concomitant]
     Active Substance: AMOXICILLIN
     Indication: Lower respiratory tract infection
     Dosage: 500 MILLIGRAM
     Route: 048
     Dates: start: 20230217
  13. ATOVAQUONE [Concomitant]
     Active Substance: ATOVAQUONE
     Indication: Antifungal prophylaxis
     Dosage: 750 MILLIGRAM
     Route: 048
     Dates: start: 20220708
  14. CLOTRIMAZOLE [Concomitant]
     Active Substance: CLOTRIMAZOLE
     Indication: Vulvovaginal candidiasis
     Dosage: UNK
     Route: 062
     Dates: start: 20230301, end: 20230301
  15. CLOTRIMAZOLE [Concomitant]
     Active Substance: CLOTRIMAZOLE
     Dosage: 100 MILLIGRAM
     Route: 061
     Dates: start: 20231025, end: 20231030
  16. CODEINE [Concomitant]
     Active Substance: CODEINE
     Indication: Cough
     Dosage: 30 MILLIGRAM
     Route: 048
     Dates: start: 20220921
  17. DIGOXIN [Concomitant]
     Active Substance: DIGOXIN
     Indication: Atrial fibrillation
     Dosage: 125 MILLIGRAM
     Route: 048
     Dates: start: 20221001
  18. NITROGLYCERIN [Concomitant]
     Active Substance: NITROGLYCERIN
     Indication: Chest pain
     Dosage: 300 MICROGRAM
     Route: 048
     Dates: start: 20220811
  19. MAGNESIUM [Concomitant]
     Active Substance: MAGNESIUM
     Indication: Muscle spasms
     Dosage: 1000 MILLIGRAM
     Route: 048
     Dates: start: 20220407
  20. PREGABALIN [Concomitant]
     Active Substance: PREGABALIN
     Indication: Peripheral sensory neuropathy
     Dosage: 150 MILLIGRAM
     Route: 048
     Dates: start: 20180101
  21. RIVAROXABAN [Concomitant]
     Active Substance: RIVAROXABAN
     Indication: Atrial fibrillation
     Dosage: 20 MILLIGRAM
     Route: 048
     Dates: start: 20240315
  22. RIVAROXABAN [Concomitant]
     Active Substance: RIVAROXABAN
     Dosage: 20 MILLIGRAM
     Route: 048
     Dates: start: 20220707, end: 20240312
  23. SPIRONOLACTONE [Concomitant]
     Active Substance: SPIRONOLACTONE
     Indication: Pneumonia cytomegaloviral
     Dosage: 12.5 MILLIGRAM
     Route: 048
     Dates: start: 20230121
  24. SPIRONOLACTONE [Concomitant]
     Active Substance: SPIRONOLACTONE
     Indication: Left ventricular failure
     Dosage: 25 MILLIGRAM
     Route: 048
     Dates: start: 20220722, end: 20230621
  25. VALGANCICLOVIR [Concomitant]
     Active Substance: VALGANCICLOVIR
     Indication: Antiviral prophylaxis
     Dosage: 450 MILLIGRAM
     Route: 048
     Dates: start: 20220513, end: 20230901
  26. ZOMETA [Concomitant]
     Active Substance: ZOLEDRONIC ACID
     Indication: Prophylaxis
     Dosage: 4 MILLIGRAM
     Route: 042
     Dates: start: 20220428
  27. BUDESONIDE\FORMOTEROL FUMARATE [Concomitant]
     Active Substance: BUDESONIDE\FORMOTEROL FUMARATE
     Indication: Asthma
     Dosage: UNK
     Route: 065
  28. IPRATROPIUM [Concomitant]
     Active Substance: IPRATROPIUM
     Indication: Asthma
     Dosage: UNK
     Route: 065
  29. TIOTROPIUM [Concomitant]
     Active Substance: TIOTROPIUM
     Indication: Asthma
     Dosage: UNK
     Route: 065
  30. ALBUTEROL [Concomitant]
     Active Substance: ALBUTEROL
     Indication: Asthma prophylaxis
     Dosage: UNK
     Route: 065
  31. ALBUTEROL [Concomitant]
     Active Substance: ALBUTEROL
     Indication: Chest discomfort
  32. FENTANYL [Concomitant]
     Active Substance: FENTANYL\FENTANYL CITRATE
     Indication: Biopsy bone marrow
     Dosage: UNK
     Route: 065
  33. MIDAZOLAM [Concomitant]
     Active Substance: MIDAZOLAM
     Indication: Biopsy bone marrow
     Dosage: UNK
     Route: 065
  34. ROPIVACAINE [Concomitant]
     Active Substance: ROPIVACAINE
     Indication: Biopsy bone marrow
     Dosage: UNK
     Route: 065
  35. BROMHEXINE [Concomitant]
     Active Substance: BROMHEXINE
     Indication: Cough
     Dosage: UNK
     Route: 065
  36. TOZINAMERAN [Concomitant]
     Active Substance: TOZINAMERAN
     Indication: COVID-19 prophylaxis
     Dosage: UNK
     Route: 065
  37. POTASSIUM CHLORIDE [Concomitant]
     Active Substance: POTASSIUM CHLORIDE
     Indication: Hypokalaemia
  38. POTASSIUM CHLORIDE [Concomitant]
     Active Substance: POTASSIUM CHLORIDE
     Dosage: UNK
     Route: 065
  39. MAGNESIUM ASPARTATE [Concomitant]
     Active Substance: MAGNESIUM ASPARTATE
     Indication: Hypomagnesaemia
     Dosage: UNK
     Route: 065
  40. LEVOTHYROXINE SODIUM [Concomitant]
     Active Substance: LEVOTHYROXINE SODIUM
     Indication: Hypothyroidism
     Dosage: UNK
     Route: 065
  41. LOPERAMIDE HYDROCHLORIDE [Concomitant]
     Active Substance: LOPERAMIDE HYDROCHLORIDE
     Indication: Diarrhoea
     Dosage: UNK
     Route: 065
  42. ROSUVASTATIN [Concomitant]
     Active Substance: ROSUVASTATIN
     Indication: Low density lipoprotein
     Dosage: UNK
     Route: 065
  43. METRONIDAZOLE [Concomitant]
     Active Substance: METRONIDAZOLE
     Indication: Mouth ulceration
     Dosage: UNK
     Route: 065
  44. FILGRASTIM [Concomitant]
     Active Substance: FILGRASTIM
     Indication: Neutropenia
     Dosage: UNK
     Route: 065
  45. chondroitin sulfate sodium/glucosamine [Concomitant]
     Indication: Osteoarthritis
     Dosage: UNK
     Route: 065
  46. ACETAMINOPHEN [Concomitant]
     Active Substance: ACETAMINOPHEN
     Indication: Osteoarthritis
     Dosage: UNK
     Route: 065
  47. ACETAMINOPHEN [Concomitant]
     Active Substance: ACETAMINOPHEN
     Indication: Pain
  48. IBUPROFEN [Concomitant]
     Active Substance: IBUPROFEN
     Indication: Pain
     Dosage: UNK
     Route: 065
  49. ENOXAPARIN [Concomitant]
     Active Substance: ENOXAPARIN
     Indication: Prophylaxis
     Dosage: UNK
     Route: 065
  50. ZOLEDRONIC ACID [Concomitant]
     Active Substance: ZOLEDRONIC ACID
     Indication: Prophylaxis
     Dosage: UNK
     Route: 065

REACTIONS (2)
  - Condition aggravated [Recovered/Resolved]
  - Abscess limb [Recovered/Resolved]

NARRATIVE: CASE EVENT DATE: 20230307
